FAERS Safety Report 4892051-8 (Version None)
Quarter: 2006Q1

REPORT INFORMATION
  Report Type: 
  Country: None (occurrence: None)
  Receive Date: 20060126
  Receipt Date: 20060117
  Transmission Date: 20060701
  Serious: Yes (Other)
  Sender: FDA-Public Use
  Company Number: PHBS2006SE00928

PATIENT
  Sex: Female

DRUGS (3)
  1. AREDIA [Suspect]
     Indication: MULTIPLE MYELOMA
     Dosage: 90 MG, QMO
     Dates: start: 20000401, end: 20011001
  2. ZOMETA [Suspect]
     Indication: MULTIPLE MYELOMA
     Dosage: 4 MG, QMO
     Dates: start: 20011101, end: 20021201
  3. GAMMAGARD [Concomitant]

REACTIONS (9)
  - BONE DEBRIDEMENT [None]
  - BONE DISORDER [None]
  - INFECTION [None]
  - JAW OPERATION [None]
  - OSTEITIS [None]
  - OSTEOMYELITIS [None]
  - OSTEONECROSIS [None]
  - PRIMARY SEQUESTRUM [None]
  - TOOTH EXTRACTION [None]
